FAERS Safety Report 5037023-8 (Version None)
Quarter: 2006Q2

REPORT INFORMATION
  Report Type: 
  Country: None (occurrence: None)
  Receive Date: 20060601
  Receipt Date: 20060209
  Transmission Date: 20061013
  Serious: No
  Sender: FDA-Public Use
  Company Number: 2006PV008535

PATIENT
  Age: 39 Year
  Sex: Female

DRUGS (3)
  1. BYETTA [Suspect]
     Indication: DIABETES MELLITUS NON-INSULIN-DEPENDENT
     Dosage: SEE IMAGE
     Route: 058
     Dates: start: 20051201, end: 20060101
  2. BYETTA [Suspect]
     Indication: DIABETES MELLITUS NON-INSULIN-DEPENDENT
     Dosage: SEE IMAGE
     Route: 058
     Dates: start: 20060101
  3. METFORMIN [Concomitant]

REACTIONS (10)
  - BLOOD GLUCOSE DECREASED [None]
  - CONSTIPATION [None]
  - DECREASED APPETITE [None]
  - DIARRHOEA [None]
  - GASTROOESOPHAGEAL REFLUX DISEASE [None]
  - INJECTION SITE BRUISING [None]
  - INJECTION SITE HAEMORRHAGE [None]
  - INJECTION SITE PRURITUS [None]
  - NAUSEA [None]
  - WEIGHT DECREASED [None]
